FAERS Safety Report 5398273-4 (Version None)
Quarter: 2007Q3

REPORT INFORMATION
  Report Type: 
  Country: None (occurrence: None)
  Receive Date: 20070724
  Receipt Date: 20070712
  Transmission Date: 20080115
  Serious: Yes (Other)
  Sender: FDA-Public Use
  Company Number: 2007326502

PATIENT
  Sex: Male

DRUGS (1)
  1. VISINE EYE DROPS [Suspect]
     Dosage: DAILY, ORAL
     Route: 048
     Dates: start: 20070201, end: 20070601

REACTIONS (3)
  - BOWEL MOVEMENT IRREGULARITY [None]
  - POISONING DELIBERATE [None]
  - TENDON PAIN [None]
